FAERS Safety Report 14014874 (Version 2)
Quarter: 2017Q4

REPORT INFORMATION
  Report Type: Report from Study
  Country: None (occurrence: US)
  Receive Date: 20170927
  Receipt Date: 20171002
  Transmission Date: 20180321
  Serious: Yes (Other)
  Sender: FDA-Public Use
  Company Number: US-ABBVIE-17K-163-2112769-00

PATIENT
  Age: 61 Year
  Sex: Female

DRUGS (2)
  1. HUMIRA [Suspect]
     Active Substance: ADALIMUMAB
     Route: 058
     Dates: start: 20160816
  2. HUMIRA [Suspect]
     Active Substance: ADALIMUMAB
     Indication: PSORIASIS
     Route: 058
     Dates: end: 201604

REACTIONS (5)
  - Cyst rupture [Recovered/Resolved]
  - Intestinal cyst [Unknown]
  - Psoriasis [Not Recovered/Not Resolved]
  - Impaired healing [Recovered/Resolved]
  - Enterovesical fistula [Recovered/Resolved]

NARRATIVE: CASE EVENT DATE: 201612
